FAERS Safety Report 20830305 (Version 3)
Quarter: 2022Q2

REPORT INFORMATION
  Report Type: Spontaneous
  Country: US (occurrence: US)
  Receive Date: 20220514
  Receipt Date: 20220626
  Transmission Date: 20220721
  Serious: Yes (Other)
  Sender: FDA-Public Use
  Company Number: US-ALXN-A202205557

PATIENT
  Age: 1 Year
  Sex: Male
  Weight: 13 kg

DRUGS (23)
  1. ULTOMIRIS [Suspect]
     Active Substance: RAVULIZUMAB-CWVZ
     Indication: Atypical haemolytic uraemic syndrome
     Dosage: 600 MG, EVERY 28 DAYS
     Route: 042
     Dates: start: 20210728
  2. ALBUTEROL [Concomitant]
     Active Substance: ALBUTEROL
     Indication: Product used for unknown indication
     Dosage: 3 ML (! VIAL), TID
     Route: 055
  3. AMOXIL                             /00249601/ [Concomitant]
     Indication: Product used for unknown indication
     Dosage: 120 MG (1.5 ML), BID
     Route: 048
  4. ATROVENT [Concomitant]
     Active Substance: IPRATROPIUM BROMIDE
     Indication: Product used for unknown indication
     Dosage: 0.5 MG (2.5 ML), QID
     Route: 055
  5. DIAZEPAM [Concomitant]
     Active Substance: DIAZEPAM
     Indication: Seizure
     Dosage: 5 MG, PRN (SPRAY 5 MG IN NOSTRIL EVERY 10 MINUTES)
     Route: 045
  6. FERROUS SULFATE [Concomitant]
     Active Substance: FERROUS SULFATE
     Indication: Product used for unknown indication
     Dosage: 15 MG (1 ML), BID
     Route: 048
  7. HYDROCORTISONE [Concomitant]
     Active Substance: HYDROCORTISONE
     Indication: Pruritus
     Dosage: UNK, PRN (4 TIMES DAILY)
     Route: 061
  8. IBUPROFEN [Concomitant]
     Active Substance: IBUPROFEN
     Indication: Pain
     Dosage: 112 MG (2.8 ML), PRN (EVERY 6 HOURS)
     Route: 048
  9. IBUPROFEN [Concomitant]
     Active Substance: IBUPROFEN
     Indication: Pyrexia
  10. KENALOG [Concomitant]
     Active Substance: TRIAMCINOLONE ACETONIDE
     Indication: Product used for unknown indication
     Dosage: UNK, BID
     Route: 061
  11. KEPPRA [Concomitant]
     Active Substance: LEVETIRACETAM
     Indication: Product used for unknown indication
     Dosage: 300 MG (3 ML), BID
     Route: 050
  12. LOTRIMIN                           /00212501/ [Concomitant]
     Indication: Product used for unknown indication
     Dosage: UNK, PRN (2 TIMES DAILY)
     Route: 061
  13. MIRALAX [Concomitant]
     Active Substance: POLYETHYLENE GLYCOL 3350
     Indication: Product used for unknown indication
     Dosage: 4 G, QD
     Route: 048
  14. MYCOSTATIN [Concomitant]
     Active Substance: NYSTATIN
     Indication: Product used for unknown indication
     Dosage: UNK, BID
     Route: 061
  15. SODIUM CHLORIDE [Concomitant]
     Active Substance: SODIUM CHLORIDE
     Indication: Product used for unknown indication
     Dosage: 3 ML, TID
     Route: 055
  16. NEURONTIN [Concomitant]
     Active Substance: GABAPENTIN
     Indication: Product used for unknown indication
     Dosage: 70 MG (1.4 ML), TID
     Route: 048
  17. PROTONIX                           /01263204/ [Concomitant]
     Indication: Product used for unknown indication
     Dosage: 14 MG 7 ML), QD
     Route: 048
  18. PROVENTIL                          /00139501/ [Concomitant]
     Indication: Product used for unknown indication
     Dosage: 2.5 MG (1 VIAL), TID
     Route: 055
  19. TRILEPTAL [Concomitant]
     Active Substance: OXCARBAZEPINE
     Indication: Product used for unknown indication
     Dosage: 60 MG (1 ML), BID
     Route: 048
  20. TYLENOL                            /00020001/ [Concomitant]
     Indication: Pain
     Dosage: 5 ML (160 MG), PRN (Q6H)
     Route: 048
  21. TYLENOL                            /00020001/ [Concomitant]
     Indication: Pyrexia
  22. VALIUM [Concomitant]
     Active Substance: DIAZEPAM
     Indication: Product used for unknown indication
     Dosage: 0.5 MG (0.5 ML), BID
     Route: 048
  23. VITAMIN D3 [Concomitant]
     Active Substance: CHOLECALCIFEROL
     Indication: Product used for unknown indication
     Dosage: 20 ?G (2 ML), QD
     Route: 048

REACTIONS (4)
  - Atypical haemolytic uraemic syndrome [Recovered/Resolved]
  - Condition aggravated [Recovered/Resolved]
  - Drug ineffective [Unknown]
  - Coronavirus infection [Recovered/Resolved]

NARRATIVE: CASE EVENT DATE: 20220328
